FAERS Safety Report 25035540 (Version 1)
Quarter: 2025Q1

REPORT INFORMATION
  Report Type: Spontaneous
  Country: JP (occurrence: JP)
  Receive Date: 20250304
  Receipt Date: 20250304
  Transmission Date: 20250408
  Serious: Yes (Other)
  Sender: UCB
  Company Number: JP-UCBJ-CD202502445UCBPHAPROD

PATIENT
  Age: 3 Decade
  Sex: Male

DRUGS (2)
  1. LEVETIRACETAM [Suspect]
     Active Substance: LEVETIRACETAM
     Indication: Epilepsy
     Route: 048
  2. CARBAMAZEPINE [Concomitant]
     Active Substance: CARBAMAZEPINE
     Indication: Epilepsy

REACTIONS (2)
  - Epilepsy [Unknown]
  - Vomiting [Unknown]
